FAERS Safety Report 6126616-2 (Version None)
Quarter: 2009Q1

REPORT INFORMATION
  Report Type: 
  Country: None (occurrence: None)
  Receive Date: 20090320
  Receipt Date: 20090306
  Transmission Date: 20090719
  Serious: Yes (Hospitalization)
  Sender: FDA-Public Use
  Company Number: GB-PFIZER INC-2008079699

PATIENT

DRUGS (7)
  1. CHAMPIX [Suspect]
     Route: 048
     Dates: start: 20080603, end: 20080818
  2. SLO-PHYLLIN [Suspect]
     Indication: CHRONIC OBSTRUCTIVE PULMONARY DISEASE
     Route: 048
  3. CETIRIZINE [Concomitant]
  4. MONTELUKAST [Concomitant]
  5. SALBUTAMOL [Concomitant]
  6. SERETIDE [Concomitant]
  7. SPIRIVA [Concomitant]

REACTIONS (1)
  - SUPRAVENTRICULAR TACHYCARDIA [None]
